FAERS Safety Report 23088724 (Version 2)
Quarter: 2023Q4

REPORT INFORMATION
  Report Type: Spontaneous
  Country: JP (occurrence: JP)
  Receive Date: 20231020
  Receipt Date: 20231101
  Transmission Date: 20240109
  Serious: Yes (Hospitalization)
  Sender: FDA-Public Use
  Company Number: JP-ROCHE-3442637

PATIENT
  Age: 8 Year

DRUGS (2)
  1. VALGANCICLOVIR HYDROCHLORIDE [Suspect]
     Active Substance: VALGANCICLOVIR HYDROCHLORIDE
     Indication: Renal transplant
     Dosage: DRY SYRUP
     Route: 048
  2. PROGRAF [Concomitant]
     Active Substance: TACROLIMUS

REACTIONS (1)
  - Cytomegalovirus infection [Unknown]
